FAERS Safety Report 10050244 (Version 1)
Quarter: 2014Q2

REPORT INFORMATION
  Report Type: Spontaneous
  Country: PT (occurrence: PT)
  Receive Date: 20140401
  Receipt Date: 20140401
  Transmission Date: 20141212
  Serious: Yes (Other)
  Sender: FDA-Public Use
  Company Number: PT-B.I. PHARMACEUTICALS,INC./RIDGEFIELD-2014-BI-13946PO

PATIENT
  Sex: Female

DRUGS (19)
  1. TWYNSTA [Suspect]
     Indication: HYPERTENSION
     Dosage: 1 ANZ
     Route: 048
     Dates: start: 201306, end: 20140327
  2. TEGRETOL / CARBAMAZEPINE [Concomitant]
     Route: 065
  3. NEBILET / NEBIVOLOL [Concomitant]
     Route: 065
  4. CLOPIDOGREL [Concomitant]
     Route: 065
  5. NITRADISC / NITROGLYCERINE [Concomitant]
     Route: 065
  6. PAROXETIN [Concomitant]
     Route: 065
  7. HIGROTON / CHLORTHALIDONE [Concomitant]
     Route: 065
  8. VISACOR / ROSUVASTATIN [Concomitant]
     Route: 065
  9. EUTIROX / LEVOTHYROXINE SODIUM [Concomitant]
     Route: 065
  10. HYPERIUM / RILMENIDINE [Concomitant]
     Route: 065
  11. LAMOTRIGINE [Concomitant]
     Route: 065
  12. PRAZON [Concomitant]
     Route: 065
  13. RIVOTRIL (CLONAZEPAM) [Concomitant]
     Route: 065
  14. ATARAX (HYDROXYZINE) [Concomitant]
     Route: 065
  15. FORMOTEROL INHALATORY [Concomitant]
     Route: 065
  16. MIFUNIDE 200 (BUDENOSIDE) [Concomitant]
     Route: 065
  17. VENTILAN (SALBUTAMOL) [Concomitant]
     Route: 065
  18. CAPOTEN (CAPTOPRIL) [Concomitant]
     Indication: HYPERTENSION
     Route: 065
  19. VICTAN (LOFLAZEPATO ETHYL) [Concomitant]
     Indication: HYPERTENSION
     Route: 065

REACTIONS (1)
  - Bronchospasm [Not Recovered/Not Resolved]
